FAERS Safety Report 7417490-2 (Version None)
Quarter: 2011Q2

REPORT INFORMATION
  Report Type: 
  Country: None (occurrence: None)
  Receive Date: 20110412
  Receipt Date: 20110412
  Transmission Date: 20111010
  Serious: Yes (Disabling, Other)
  Sender: FDA-Public Use
  Company Number: None

PATIENT
  Age: 43 Year
  Sex: Female
  Weight: 39.9165 kg

DRUGS (4)
  1. BONIVA [Concomitant]
  2. MICALLICIN [Concomitant]
  3. FOSEMAX [Concomitant]
  4. RECLAST [Suspect]
     Indication: OSTEOPOROSIS
     Dosage: 1 BY GLASS BOTTEL 1 YR INTERVINIS
     Route: 042
     Dates: start: 20090702

REACTIONS (5)
  - CONDITION AGGRAVATED [None]
  - JAW DISORDER [None]
  - MALAISE [None]
  - ALOPECIA [None]
  - BONE DISORDER [None]
